FAERS Safety Report 8857714 (Version 3)
Quarter: 2012Q4

REPORT INFORMATION
  Report Type: 
  Country: US (occurrence: US)
  Receive Date: 20121024
  Receipt Date: 20121228
  Transmission Date: 20130627
  Serious: Yes (Other)
  Sender: FDA-Public Use
  Company Number: US-PFIZER INC-2012263695

PATIENT
  Age: 49 Year
  Sex: Female

DRUGS (2)
  1. DILANTIN [Suspect]
     Indication: SEIZURES
     Dosage: 200 mg, 2x/day (100 mg 2 tabs PO BID)
     Route: 048
  2. MELOXICAM [Suspect]
     Indication: PAIN
     Dosage: 15 mg 1/2 tab PO BID PRN
     Route: 048

REACTIONS (2)
  - Drug ineffective [Unknown]
  - Impaired work ability [Unknown]
